FAERS Safety Report 9183794 (Version 2)
Quarter: 2013Q4

REPORT INFORMATION
  Report Type: Spontaneous
  Country: IT (occurrence: IT)
  Receive Date: 20121030
  Receipt Date: 20131024
  Transmission Date: 20140711
  Serious: Yes (Other)
  Sender: FDA-Public Use
  Company Number: IT-UCBSA-069732

PATIENT
  Age: 18 Year
  Sex: Female
  Weight: 35 kg

DRUGS (2)
  1. VIMPAT [Suspect]
     Indication: EPILEPSY
     Dosage: DAILY DOSE  : 300 MG
     Route: 048
     Dates: start: 20111112, end: 2012
  2. LAMICTAL [Concomitant]
     Indication: EPILEPSY
     Dosage: 100 MG ,56 DISPERSIBLE/CHEWABLE TABLETS . DAILY DOSE : 200 MG
     Route: 048
     Dates: start: 20110401, end: 20121011

REACTIONS (2)
  - Breast mass [Recovered/Resolved]
  - Necrotising panniculitis [Recovered/Resolved]
